FAERS Safety Report 17602229 (Version 2)
Quarter: 2020Q2

REPORT INFORMATION
  Report Type: Spontaneous
  Country: US (occurrence: US)
  Receive Date: 20200331
  Receipt Date: 20200514
  Transmission Date: 20200713
  Serious: No
  Sender: FDA-Public Use
  Company Number: US-ASTRAZENECA-2020SE35439

PATIENT
  Age: 923 Month
  Sex: Female

DRUGS (2)
  1. SYMBICORT [Suspect]
     Active Substance: BUDESONIDE\FORMOTEROL FUMARATE DIHYDRATE
     Indication: DRUG HYPERSENSITIVITY
     Dosage: 80/4.5 MCG, TWO TIMES A DAY
     Route: 055
     Dates: start: 2019
  2. SYMBICORT [Suspect]
     Active Substance: BUDESONIDE\FORMOTEROL FUMARATE DIHYDRATE
     Indication: NASAL CONGESTION
     Dosage: 80/4.5 MCG, TWO TIMES A DAY
     Route: 055
     Dates: start: 2019

REACTIONS (8)
  - Incorrect dose administered by device [Unknown]
  - Ill-defined disorder [Unknown]
  - Device leakage [Unknown]
  - Wheezing [Unknown]
  - Device issue [Unknown]
  - Accident [Unknown]
  - Intentional product misuse [Unknown]
  - Product expiration date issue [Unknown]

NARRATIVE: CASE EVENT DATE: 201912
